FAERS Safety Report 5914454-2 (Version None)
Quarter: 2008Q4

REPORT INFORMATION
  Report Type: 
  Country: None (occurrence: None)
  Receive Date: 20081007
  Receipt Date: 20081002
  Transmission Date: 20090506
  Serious: Yes (Death)
  Sender: FDA-Public Use
  Company Number: 2008SP018889

PATIENT
  Age: 51 Year
  Sex: Male

DRUGS (7)
  1. PEG-INTRON [Suspect]
     Indication: HEPATITIS C
     Dosage: 120 MCG; QW
  2. REBETOL [Suspect]
     Indication: HEPATITIS C
     Dosage: 400 MG; QAM; PO, 600 MG; QPM; PO
     Route: 048
  3. ASPIRIN [Concomitant]
  4. CHLORTHALIDONE [Concomitant]
  5. LISINOPRIL [Concomitant]
  6. RANITIDINE [Concomitant]
  7. TRIAMCINOLONE [Concomitant]

REACTIONS (8)
  - BLOOD ALCOHOL INCREASED [None]
  - BLOOD PRESSURE DECREASED [None]
  - BODY TEMPERATURE DECREASED [None]
  - CARDIO-RESPIRATORY ARREST [None]
  - INTESTINAL DILATATION [None]
  - MULTIPLE FRACTURES [None]
  - PELVIC FRACTURE [None]
  - ROAD TRAFFIC ACCIDENT [None]
